FAERS Safety Report 10056647 (Version 7)
Quarter: 2018Q2

REPORT INFORMATION
  Report Type: Spontaneous
  Country: JP (occurrence: JP)
  Receive Date: 20140403
  Receipt Date: 20180614
  Transmission Date: 20180711
  Serious: Yes (Life-Threatening, Hospitalization)
  Sender: FDA-Public Use
  Company Number: JP-PFIZER INC-2014049972

PATIENT
  Age: 67 Year
  Sex: Male

DRUGS (17)
  1. EPINASTINE /01288402/ [Concomitant]
     Indication: CHRONIC OBSTRUCTIVE PULMONARY DISEASE
     Route: 048
  2. INLYTA [Suspect]
     Active Substance: AXITINIB
     Dosage: 6 MG, DAILY
     Route: 048
     Dates: start: 20140221, end: 20140223
  3. ALVESCO [Concomitant]
     Active Substance: CICLESONIDE
     Indication: CHRONIC OBSTRUCTIVE PULMONARY DISEASE
     Route: 048
  4. INLYTA [Suspect]
     Active Substance: AXITINIB
     Indication: METASTATIC RENAL CELL CARCINOMA
     Dosage: 5 MG, 2X/DAY
     Route: 048
     Dates: start: 20131028
  5. INLYTA [Suspect]
     Active Substance: AXITINIB
     Dosage: 10 MG, DAILY
     Route: 048
     Dates: start: 20140220, end: 20140220
  6. SEREVENT DISKUS [Concomitant]
     Active Substance: SALMETEROL XINAFOATE
     Indication: CHRONIC OBSTRUCTIVE PULMONARY DISEASE
     Route: 048
  7. INLYTA [Suspect]
     Active Substance: AXITINIB
     Dosage: 20 MG, DAILY
     Route: 048
     Dates: start: 20140210, end: 20140217
  8. SINGULAIR [Concomitant]
     Active Substance: MONTELUKAST SODIUM
     Indication: CHRONIC OBSTRUCTIVE PULMONARY DISEASE
     Route: 048
  9. SINGULAIR [Concomitant]
     Active Substance: MONTELUKAST SODIUM
     Indication: ASTHMA
  10. INLYTA [Suspect]
     Active Substance: AXITINIB
     Dosage: 16 MG, DAILY
     Route: 048
     Dates: start: 20140131
  11. EPINASTINE /01288402/ [Concomitant]
     Indication: ASTHMA
  12. SEREVENT DISKUS [Concomitant]
     Active Substance: SALMETEROL XINAFOATE
     Indication: ASTHMA
  13. INLYTA [Suspect]
     Active Substance: AXITINIB
     Dosage: 20 MG, DAILY
     Route: 048
     Dates: start: 20140208
  14. SPIRIVA [Concomitant]
     Active Substance: TIOTROPIUM BROMIDE MONOHYDRATE
     Indication: ASTHMA
  15. INLYTA [Suspect]
     Active Substance: AXITINIB
     Dosage: 16 MG, DAILY
     Route: 048
     Dates: start: 20140218, end: 20140219
  16. SPIRIVA [Concomitant]
     Active Substance: TIOTROPIUM BROMIDE MONOHYDRATE
     Indication: CHRONIC OBSTRUCTIVE PULMONARY DISEASE
     Route: 048
  17. ALVESCO [Concomitant]
     Active Substance: CICLESONIDE
     Indication: ASTHMA

REACTIONS (2)
  - Interstitial lung disease [Recovering/Resolving]
  - Pulmonary cavitation [Recovering/Resolving]

NARRATIVE: CASE EVENT DATE: 20140115
